FAERS Safety Report 4513468-7 (Version None)
Quarter: 2004Q4

REPORT INFORMATION
  Report Type: 
  Country: None (occurrence: None)
  Receive Date: 20041130
  Receipt Date: 20041115
  Transmission Date: 20050328
  Serious: Yes (Hospitalization)
  Sender: FDA-Public Use
  Company Number: 200414320FR

PATIENT
  Age: 39 Year
  Sex: Male

DRUGS (9)
  1. FLAGYL [Suspect]
     Indication: ABSCESS
     Route: 042
     Dates: start: 20040930, end: 20041001
  2. FLAGYL [Suspect]
     Indication: CELLULITIS
     Route: 042
     Dates: start: 20040930, end: 20041001
  3. ROCEPHIN [Suspect]
     Indication: ABSCESS
     Route: 042
     Dates: start: 20040930, end: 20041001
  4. ROCEPHIN [Suspect]
     Indication: CELLULITIS
     Route: 042
     Dates: start: 20040930, end: 20041001
  5. AUGMENTIN '125' [Suspect]
     Indication: ABSCESS
     Route: 042
     Dates: start: 20040926, end: 20040930
  6. AUGMENTIN '125' [Suspect]
     Indication: CELLULITIS
     Route: 042
     Dates: start: 20040926, end: 20040930
  7. TAZOCILLINE [Suspect]
     Indication: ABSCESS
     Route: 042
  8. TAZOCILLINE [Suspect]
     Indication: CELLULITIS
     Route: 042
  9. TIBERAL [Concomitant]
     Route: 042
     Dates: start: 20040926, end: 20040930

REACTIONS (3)
  - CHILLS [None]
  - INFLAMMATION [None]
  - PYREXIA [None]
